FAERS Safety Report 15715247 (Version 1)
Quarter: 2018Q4

REPORT INFORMATION
  Report Type: Spontaneous
  Country: GB (occurrence: GB)
  Receive Date: 20181212
  Receipt Date: 20181212
  Transmission Date: 20190205
  Serious: Yes (Hospitalization, Other)
  Sender: FDA-Public Use
  Company Number: GB-009507513-1812GBR004885

PATIENT
  Age: 68 Year
  Sex: Female
  Weight: 60 kg

DRUGS (7)
  1. NIFEDIPINE. [Concomitant]
     Active Substance: NIFEDIPINE
  2. LANSOPRAZOLE. [Concomitant]
     Active Substance: LANSOPRAZOLE
  3. ACETAMINOPHEN. [Concomitant]
     Active Substance: ACETAMINOPHEN
  4. CLOPIDOGREL [Concomitant]
     Active Substance: CLOPIDOGREL BISULFATE
  5. IBUPROFEN. [Concomitant]
     Active Substance: IBUPROFEN
  6. PEMBROLIZUMAB. [Suspect]
     Active Substance: PEMBROLIZUMAB
     Indication: METASTATIC BRONCHIAL CARCINOMA
     Dosage: 125 MILLIGRAM, UNK
     Route: 042
     Dates: start: 20180809, end: 20180921
  7. PREDNISOLONE. [Concomitant]
     Active Substance: PREDNISOLONE

REACTIONS (5)
  - Pain [Unknown]
  - Vasculitis [Not Recovered/Not Resolved]
  - Peripheral coldness [Unknown]
  - Skin discolouration [Unknown]
  - Raynaud^s phenomenon [Not Recovered/Not Resolved]

NARRATIVE: CASE EVENT DATE: 20180925
